FAERS Safety Report 13591644 (Version 1)
Quarter: 2017Q2

REPORT INFORMATION
  Report Type: Spontaneous
  Country: US (occurrence: US)
  Receive Date: 20170530
  Receipt Date: 20170530
  Transmission Date: 20170830
  Serious: No
  Sender: FDA-Public Use
  Company Number: US-GLAXOSMITHKLINE-US2017079760

PATIENT
  Age: 76 Year
  Sex: Male

DRUGS (3)
  1. BREO ELLIPTA [Suspect]
     Active Substance: FLUTICASONE FUROATE\VILANTEROL TRIFENATATE
     Indication: COUGH
     Dosage: 2 PUFF(S), QOD
     Route: 055
     Dates: start: 20170525
  2. DULERA [Suspect]
     Active Substance: FORMOTEROL FUMARATE DIHYDRATE\MOMETASONE FUROATE
     Indication: COUGH
     Dosage: UNK UNK, QOD
     Route: 055
  3. BREO ELLIPTA [Suspect]
     Active Substance: FLUTICASONE FUROATE\VILANTEROL TRIFENATATE
     Indication: RESPIRATORY DISORDER

REACTIONS (5)
  - Wrong technique in product usage process [Unknown]
  - Device use error [Unknown]
  - Overdose [Unknown]
  - Labelled drug-drug interaction medication error [Unknown]
  - Product use issue [Unknown]

NARRATIVE: CASE EVENT DATE: 20170525
